FAERS Safety Report 20578830 (Version 1)
Quarter: 2022Q1

REPORT INFORMATION
  Report Type: Spontaneous
  Country: GB (occurrence: GB)
  Receive Date: 20220310
  Receipt Date: 20220310
  Transmission Date: 20220423
  Serious: Yes (Life-Threatening, Hospitalization, Other)
  Sender: FDA-Public Use
  Company Number: None

PATIENT
  Sex: Male

DRUGS (10)
  1. ARIPIPRAZOLE [Suspect]
     Active Substance: ARIPIPRAZOLE
     Indication: Schizophrenia
     Dosage: MORNING
     Route: 048
  2. SERTRALINE [Suspect]
     Active Substance: SERTRALINE HYDROCHLORIDE
     Indication: Depression
     Route: 048
  3. OMEPRAZOLE [Concomitant]
     Active Substance: OMEPRAZOLE
  4. OXYCODONE HYDROCHLORIDE [Concomitant]
     Active Substance: OXYCODONE HYDROCHLORIDE
  5. PREDNISOLONE [Concomitant]
     Active Substance: PREDNISOLONE
  6. BUMETANIDE [Concomitant]
     Active Substance: BUMETANIDE
  7. CYCLIZINE [Concomitant]
     Active Substance: CYCLIZINE
  8. HUMULIN NOS [Concomitant]
     Active Substance: INSULIN HUMAN
  9. LINAGLIPTIN [Concomitant]
     Active Substance: LINAGLIPTIN
  10. MIDAZOLAM [Concomitant]
     Active Substance: MIDAZOLAM

REACTIONS (8)
  - Pulmonary oedema [Recovered/Resolved]
  - Eosinophilic pneumonia [Recovered/Resolved]
  - Pneumonitis [Unknown]
  - Condition aggravated [Unknown]
  - Pulmonary congestion [Unknown]
  - Confusional state [Unknown]
  - Extrapyramidal disorder [Unknown]
  - Catatonia [Unknown]
